FAERS Safety Report 5745240-4 (Version None)
Quarter: 2008Q2

REPORT INFORMATION
  Report Type: 
  Country: None (occurrence: None)
  Receive Date: 20080521
  Receipt Date: 20080520
  Transmission Date: 20081010
  Serious: Yes (Congenital Anomaly)
  Sender: FDA-Public Use
  Company Number: B0521102A

PATIENT

DRUGS (2)
  1. AVANDAMET [Suspect]
     Dosage: 4MG PER DAY
     Dates: start: 20050630, end: 20070802
  2. ROSUVASTATIN [Suspect]
     Indication: BLOOD CHOLESTEROL INCREASED
     Dates: start: 20050727, end: 20070802

REACTIONS (2)
  - HEMIVERTEBRA [None]
  - PULMONARY VALVE DISEASE [None]
